FAERS Safety Report 8740378 (Version 3)
Quarter: 2013Q1

REPORT INFORMATION
  Report Type: Spontaneous
  Country: US (occurrence: US)
  Receive Date: 20120823
  Receipt Date: 20130119
  Transmission Date: 20140127
  Serious: No
  Sender: FDA-Public Use
  Company Number: US-009507513-1208USA004674

PATIENT
  Age: 34 Year
  Sex: Female
  Weight: 89.8 kg

DRUGS (6)
  1. IMPLANON [Suspect]
     Indication: CONTRACEPTION
     Dosage: 1 DF, EVERY 3 YEARS
     Route: 059
     Dates: start: 20111230
  2. INSULIN [Concomitant]
     Indication: DIABETES MELLITUS
     Dosage: 100 UNITS, BID
  3. CELEBREX [Concomitant]
     Indication: ARTHRALGIA
  4. METFORMIN [Concomitant]
  5. LIPITOR [Concomitant]
  6. CYMBALTA [Concomitant]

REACTIONS (2)
  - Knee operation [Unknown]
  - Unintended pregnancy [Unknown]
